FAERS Safety Report 15841930 (Version 2)
Quarter: 2019Q1

REPORT INFORMATION
  Report Type: Spontaneous
  Country: JP (occurrence: JP)
  Receive Date: 20190118
  Receipt Date: 20190304
  Transmission Date: 20190417
  Serious: Yes (Death, Life-Threatening, Hospitalization, Other)
  Sender: FDA-Public Use
  Company Number: JP-GLAXOSMITHKLINE-JP2019JPN008041

PATIENT
  Age: 31 Year
  Sex: Male
  Weight: 49 kg

DRUGS (5)
  1. TRACLEER [Concomitant]
     Active Substance: BOSENTAN
     Indication: PULMONARY ARTERIAL HYPERTENSION
     Dosage: 125 MG, BID
     Dates: start: 20080507, end: 20130521
  2. REVATIO [Concomitant]
     Active Substance: SILDENAFIL CITRATE
     Indication: PULMONARY ARTERIAL HYPERTENSION
     Dosage: 20 MG, TID
     Dates: start: 20080430, end: 20130521
  3. FLOLAN [Suspect]
     Active Substance: EPOPROSTENOL SODIUM
     Dosage: 143 NG/KG, UNK
     Route: 042
     Dates: start: 20130423
  4. FLOLAN [Suspect]
     Active Substance: EPOPROSTENOL SODIUM
     Indication: PULMONARY ARTERIAL HYPERTENSION
     Dosage: 1 NG/KG, UNK
     Route: 042
     Dates: start: 20070404
  5. FLOLAN [Suspect]
     Active Substance: EPOPROSTENOL SODIUM
     Dosage: 147 NG/KG, QD
     Route: 042
     Dates: end: 20130521

REACTIONS (5)
  - Lymphadenopathy [Fatal]
  - Abdominal distension [Recovering/Resolving]
  - Ileus paralytic [Fatal]
  - Lymphoma [Fatal]
  - Enteritis [Fatal]

NARRATIVE: CASE EVENT DATE: 20130420
